FAERS Safety Report 10487673 (Version 1)
Quarter: 2014Q4

REPORT INFORMATION
  Report Type: Spontaneous
  Country: ES (occurrence: ES)
  Receive Date: 20141001
  Receipt Date: 20141001
  Transmission Date: 20150528
  Serious: Yes (Hospitalization, Other)
  Sender: FDA-Public Use
  Company Number: ES-ROCHE-1468615

PATIENT
  Sex: Female

DRUGS (3)
  1. XOLAIR [Suspect]
     Active Substance: OMALIZUMAB
     Route: 065
     Dates: start: 20140618, end: 20140618
  2. XOLAIR [Suspect]
     Active Substance: OMALIZUMAB
     Indication: ASTHMA
     Route: 065
     Dates: start: 20140227
  3. XOLAIR [Suspect]
     Active Substance: OMALIZUMAB
     Route: 065
     Dates: start: 20140522

REACTIONS (8)
  - Asthma [Unknown]
  - General physical health deterioration [Unknown]
  - Product use issue [Unknown]
  - Respiratory failure [Recovered/Resolved]
  - Asthmatic crisis [Recovered/Resolved]
  - Respiratory tract infection [Unknown]
  - Lung disorder [Unknown]
  - Drug ineffective [Unknown]
